FAERS Safety Report 23448146 (Version 1)
Quarter: 2024Q1

REPORT INFORMATION
  Report Type: Spontaneous
  Country: FR (occurrence: FR)
  Receive Date: 20240126
  Receipt Date: 20240126
  Transmission Date: 20240410
  Serious: Yes (Life-Threatening, Other)
  Sender: FDA-Public Use
  Company Number: FR-PRINSTON PHARMACEUTICAL INC.-2024PRN00023

PATIENT
  Age: 19 Year
  Sex: Female
  Weight: 52 kg

DRUGS (6)
  1. VENLAFAXINE [Suspect]
     Active Substance: VENLAFAXINE HYDROCHLORIDE
     Dosage: XR PILL; INITIAL DOSING UNKNOWN
  2. VENLAFAXINE [Suspect]
     Active Substance: VENLAFAXINE HYDROCHLORIDE
     Dosage: 11.25 G, ONCE (GREATER THAN OR EQUAL TO 50 PILLS)
     Route: 048
  3. RISPERIDONE [Concomitant]
     Active Substance: RISPERIDONE
  4. PALIPERIDONE [Concomitant]
     Active Substance: PALIPERIDONE
  5. DIAZEPAM [Concomitant]
     Active Substance: DIAZEPAM
  6. LAMOTRIGINE [Concomitant]
     Active Substance: LAMOTRIGINE

REACTIONS (4)
  - Overdose [Recovered/Resolved]
  - Suicide attempt [Recovered/Resolved]
  - Stress cardiomyopathy [Recovered/Resolved]
  - Bezoar [Unknown]
